FAERS Safety Report 17546251 (Version 1)
Quarter: 2020Q1

REPORT INFORMATION
  Report Type: Spontaneous
  Country: US (occurrence: US)
  Receive Date: 20200316
  Receipt Date: 20200316
  Transmission Date: 20200409
  Serious: No
  Sender: FDA-Public Use
  Company Number: NVSC2020US073033

PATIENT
  Sex: Male

DRUGS (1)
  1. PROMACTA [Suspect]
     Active Substance: ELTROMBOPAG OLAMINE
     Indication: IDIOPATHIC PULMONARY FIBROSIS
     Dosage: 75 MG, QD
     Route: 048
     Dates: start: 20170203

REACTIONS (3)
  - Immune system disorder [Unknown]
  - Memory impairment [Unknown]
  - Jaundice [Unknown]
